FAERS Safety Report 7830369-7 (Version None)
Quarter: 2011Q4

REPORT INFORMATION
  Report Type: 
  Country: None (occurrence: None)
  Receive Date: 20111021
  Receipt Date: 20111018
  Transmission Date: 20120403
  Serious: Yes (Other)
  Sender: FDA-Public Use
  Company Number: US-AMGEN-USASP2011053813

PATIENT
  Age: 63 Year
  Sex: Male

DRUGS (1)
  1. ENBREL [Suspect]
     Indication: RHEUMATOID ARTHRITIS
     Dosage: 50 MG, QWK
     Dates: start: 20070301, end: 20110501

REACTIONS (5)
  - FALL [None]
  - LOWER LIMB FRACTURE [None]
  - RHEUMATOID ARTHRITIS [None]
  - POSTOPERATIVE WOUND INFECTION [None]
  - PAIN IN EXTREMITY [None]
